FAERS Safety Report 9028011 (Version 1)
Quarter: 2013Q1

REPORT INFORMATION
  Report Type: Spontaneous
  Country: CH (occurrence: CH)
  Receive Date: 20130123
  Receipt Date: 20130123
  Transmission Date: 20140127
  Serious: Yes (Hospitalization)
  Sender: FDA-Public Use
  Company Number: CH-JNJFOC-20130103886

PATIENT
  Age: 83 Year
  Sex: Female
  Weight: 60 kg

DRUGS (19)
  1. DUROGESIC [Suspect]
     Indication: PAIN
     Route: 062
  2. CITALOPRAM [Suspect]
     Indication: DEPRESSION
     Route: 048
  3. CITALOPRAM [Suspect]
     Indication: DEPRESSION
     Route: 048
     Dates: start: 2011
  4. REMERON [Suspect]
     Indication: DEPRESSION
     Route: 048
     Dates: start: 2011
  5. SIFROL [Suspect]
     Indication: MOVEMENT DISORDER
     Route: 048
  6. SIFROL [Suspect]
     Indication: MOVEMENT DISORDER
     Route: 048
  7. SIFROL [Suspect]
     Indication: EXTRAPYRAMIDAL DISORDER
     Route: 048
  8. SIFROL [Suspect]
     Indication: EXTRAPYRAMIDAL DISORDER
     Route: 048
  9. GABAPENTINE [Suspect]
     Indication: PAIN
     Route: 048
  10. GABAPENTINE [Suspect]
     Indication: PAIN
     Route: 048
  11. DUOFER [Concomitant]
     Indication: IRON DEFICIENCY
     Route: 048
  12. TORASEMIDE [Concomitant]
     Indication: ESSENTIAL HYPERTENSION
     Route: 048
  13. ASPIRIN [Concomitant]
     Indication: PROPHYLACTIC CHEMOTHERAPY
     Route: 048
  14. AMIODARONE [Concomitant]
     Indication: ARRHYTHMIA
     Route: 048
  15. ATORVASTATIN [Concomitant]
     Indication: HYPERLIPIDAEMIA
     Route: 048
  16. DAFALGAN [Concomitant]
     Indication: PAIN
     Route: 048
  17. CALCIMAGON D3 [Concomitant]
     Indication: OSTEOPOROTIC FRACTURE
     Route: 048
  18. DISTRANEURIN [Concomitant]
     Indication: INSOMNIA
     Route: 048
  19. ESOMEPRAZOLE [Concomitant]
     Indication: PROPHYLACTIC CHEMOTHERAPY
     Route: 048

REACTIONS (1)
  - Dyskinesia [Recovering/Resolving]
